FAERS Safety Report 9012488 (Version 1)
Quarter: 2013Q1

REPORT INFORMATION
  Report Type: Spontaneous
  Country: US (occurrence: US)
  Receive Date: 20130114
  Receipt Date: 20130114
  Transmission Date: 20140127
  Serious: No
  Sender: FDA-Public Use
  Company Number: US-PFIZER INC-2013015248

PATIENT
  Sex: Male

DRUGS (3)
  1. CHANTIX [Suspect]
     Indication: SMOKING CESSATION THERAPY
     Dosage: UNK
     Route: 048
     Dates: start: 201212
  2. XANAX [Suspect]
     Dosage: UNK
     Route: 048
  3. TRAZODONE HCL [Suspect]
     Dosage: UNK

REACTIONS (1)
  - Insomnia [Unknown]
